FAERS Safety Report 7427639-3 (Version None)
Quarter: 2011Q1

REPORT INFORMATION
  Report Type: 
  Country: None (occurrence: None)
  Receive Date: 20110302
  Receipt Date: 20101104
  Transmission Date: 20110831
  Serious: No
  Sender: FDA-Public Use
  Company Number: 018141

PATIENT
  Sex: Female
  Weight: 57 kg

DRUGS (13)
  1. BONIVA [Concomitant]
  2. RESTASIS [Concomitant]
  3. CIMZIA [Suspect]
     Indication: CROHN'S DISEASE
     Dosage: (400 MG 1X/4 WEEKS SUBCUTANEOUS)
     Route: 058
     Dates: start: 20100623
  4. CIMZIA [Suspect]
     Indication: OSTEOARTHRITIS
     Dosage: (400 MG 1X/4 WEEKS SUBCUTANEOUS)
     Route: 058
     Dates: start: 20100623
  5. CIMZIA [Suspect]
     Indication: POLYARTHRITIS
     Dosage: (400 MG 1X/4 WEEKS SUBCUTANEOUS)
     Route: 058
     Dates: start: 20100623
  6. TRAMADOL [Concomitant]
  7. CYMBALTA [Concomitant]
  8. DARVOCET [Concomitant]
  9. LIBRAX [Concomitant]
  10. PROTONIX [Concomitant]
  11. WELLBUTRIN [Concomitant]
  12. XANAX [Concomitant]
  13. ROBAXIN [Concomitant]

REACTIONS (9)
  - CONSTIPATION [None]
  - ARTHRALGIA [None]
  - PYREXIA [None]
  - FATIGUE [None]
  - DECREASED APPETITE [None]
  - ECZEMA [None]
  - ABDOMINAL DISTENSION [None]
  - NAUSEA [None]
  - HEADACHE [None]
